FAERS Safety Report 6522191-9 (Version None)
Quarter: 2009Q4

REPORT INFORMATION
  Report Type: 
  Country: None (occurrence: None)
  Receive Date: 20091229
  Receipt Date: 20091229
  Transmission Date: 20100525
  Serious: Yes (Life-Threatening)
  Sender: FDA-Public Use
  Company Number: None

PATIENT
  Age: 64 Year
  Sex: Male

DRUGS (2)
  1. PROPOFOL [Suspect]
     Indication: ENDOTRACHEAL INTUBATION
     Dosage: 100MCG IV X 1
     Route: 042
  2. PROPOFOL [Suspect]
     Indication: SEDATION
     Dosage: 100MCG IV X 1
     Route: 042

REACTIONS (1)
  - SEPTIC SHOCK [None]
